FAERS Safety Report 16791378 (Version 2)
Quarter: 2019Q3

REPORT INFORMATION
  Report Type: Spontaneous
  Country: BE (occurrence: BE)
  Receive Date: 20190910
  Receipt Date: 20190913
  Transmission Date: 20191005
  Serious: Yes (Other)
  Sender: FDA-Public Use
  Company Number: BE-PFIZER INC-2019390036

PATIENT
  Sex: Male

DRUGS (4)
  1. PANTOMED (PANTOPRAZOLE) [Suspect]
     Active Substance: PANTOPRAZOLE
     Dosage: UNK
     Route: 065
  2. DUSPATALIN [MEBEVERINE HYDROCHLORIDE] [Suspect]
     Active Substance: MEBEVERINE HYDROCHLORIDE
     Dosage: UNK
     Route: 048
  3. PAROXETINE. [Suspect]
     Active Substance: PAROXETINE
     Dosage: UNK
     Route: 065
  4. TEMESTA EXPIDET [Suspect]
     Active Substance: LORAZEPAM
     Dosage: UNK
     Route: 065

REACTIONS (2)
  - Intentional self-injury [Unknown]
  - Suicidal ideation [Unknown]
